FAERS Safety Report 25246936 (Version 2)
Quarter: 2025Q2

REPORT INFORMATION
  Report Type: Report from Study
  Country: CA (occurrence: CA)
  Receive Date: 20250428
  Receipt Date: 20250527
  Transmission Date: 20250717
  Serious: No
  Sender: SANDOZ
  Company Number: CA-002147023-NVSC2022CA133205

PATIENT
  Sex: Male

DRUGS (2)
  1. ERELZI [Suspect]
     Active Substance: ETANERCEPT-SZZS
     Indication: Ankylosing spondylitis
     Dosage: 50 MG, QW
     Route: 058
     Dates: start: 20211003
  2. ERELZI [Suspect]
     Active Substance: ETANERCEPT-SZZS
     Dosage: 50 MG, QW
     Route: 058

REACTIONS (4)
  - Disability assessment scale [Unknown]
  - General physical health deterioration [Unknown]
  - Malaise [Unknown]
  - Product use issue [Unknown]
